FAERS Safety Report 18173014 (Version 3)
Quarter: 2020Q4

REPORT INFORMATION
  Report Type: Spontaneous
  Country: JP (occurrence: JP)
  Receive Date: 20200820
  Receipt Date: 20201113
  Transmission Date: 20210113
  Serious: Yes (Other)
  Sender: FDA-Public Use
  Company Number: JP-ROCHE-2597179

PATIENT
  Age: 53 Year
  Sex: Male

DRUGS (3)
  1. ACTEMRA [Suspect]
     Active Substance: TOCILIZUMAB
     Indication: COVID-19 PNEUMONIA
     Route: 041
     Dates: start: 20200416, end: 2020
  2. PLAQUENIL [Concomitant]
     Active Substance: HYDROXYCHLOROQUINE SULFATE
     Indication: COVID-19
     Route: 065
     Dates: start: 20200411, end: 20200416
  3. AVIGAN [Concomitant]
     Active Substance: FAVIPIRAVIR
     Indication: COVID-19
     Route: 065
     Dates: start: 20200411, end: 20200423

REACTIONS (4)
  - Intentional product use issue [Unknown]
  - Interstitial lung disease [Unknown]
  - Off label use [Unknown]
  - Device related infection [Recovered/Resolved]

NARRATIVE: CASE EVENT DATE: 20200416
